FAERS Safety Report 21602055 (Version 1)
Quarter: 2022Q4

REPORT INFORMATION
  Report Type: Spontaneous
  Country: US (occurrence: US)
  Receive Date: 20221116
  Receipt Date: 20221116
  Transmission Date: 20230112
  Serious: No
  Sender: FDA-Public Use
  Company Number: US-Accord-279501

PATIENT
  Sex: Female

DRUGS (1)
  1. LEVOTHYROXINE [Suspect]
     Active Substance: LEVOTHYROXINE
     Indication: Thyroid therapy
     Dates: start: 20220903

REACTIONS (3)
  - Asthma [Not Recovered/Not Resolved]
  - Arthralgia [Not Recovered/Not Resolved]
  - Reaction to excipient [Not Recovered/Not Resolved]
